FAERS Safety Report 4375381-8 (Version None)
Quarter: 2004Q2

REPORT INFORMATION
  Report Type: 
  Country: None (occurrence: None)
  Receive Date: 20040528
  Receipt Date: 20040511
  Transmission Date: 20050107
  Serious: Yes (Hospitalization)
  Sender: FDA-Public Use
  Company Number: 2004USA000060

PATIENT
  Age: 32 Year
  Sex: Male
  Weight: 118.4 kg

DRUGS (13)
  1. THYMOGLOBULIN [Suspect]
     Indication: RENAL TRANSPLANT
     Dosage: 100 MG QD
     Dates: start: 20031028, end: 20031028
  2. THYMOGLOBULIN [Suspect]
     Indication: RENAL TRANSPLANT
     Dosage: 100 MG QD
     Dates: start: 20031031, end: 20031104
  3. VERSED [Concomitant]
  4. ZINACEF [Concomitant]
  5. SOLU-MEDROL [Concomitant]
  6. CELLCEPT [Concomitant]
  7. PHENYLEPHRINE [Concomitant]
  8. BICITRA [Concomitant]
  9. NIMBEX [Concomitant]
  10. MANNITOL [Concomitant]
  11. LASIX [Concomitant]
  12. DOPAMINE HCL [Concomitant]
  13. LIDOCAINE [Concomitant]

REACTIONS (1)
  - PULMONARY OEDEMA [None]
